FAERS Safety Report 4518095-3 (Version None)
Quarter: 2004Q4

REPORT INFORMATION
  Report Type: 
  Country: None (occurrence: None)
  Receive Date: 20041130
  Receipt Date: 20041124
  Transmission Date: 20050328
  Serious: Yes (Death, Hospitalization)
  Sender: FDA-Public Use
  Company Number: BEWYE234825NOV04

PATIENT
  Age: 75 Year
  Sex: Male

DRUGS (4)
  1. GEMTUZUMAB OZOGAMICIN (GEMTUZUMAB OZOGAMICIN, INJECTION) [Suspect]
     Indication: ACUTE MYELOID LEUKAEMIA RECURRENT
     Dosage: 16,8 MG INTRAVENOUS
     Route: 042
     Dates: start: 20041103, end: 20041103
  2. TARIVID (OFLOXACIN HYDROCHLORIDE) [Concomitant]
  3. ZOVIRAX [Concomitant]
  4. DIFLUCAN [Concomitant]

REACTIONS (8)
  - BLOOD BILIRUBIN INCREASED [None]
  - CATHETER SITE ERYTHEMA [None]
  - DYSSTASIA [None]
  - FEBRILE NEUTROPENIA [None]
  - MALAISE [None]
  - MULTI-ORGAN FAILURE [None]
  - SPEECH DISORDER [None]
  - STAPHYLOCOCCAL SEPSIS [None]
